FAERS Safety Report 5826551-0 (Version None)
Quarter: 2008Q3

REPORT INFORMATION
  Report Type: 
  Country: None (occurrence: None)
  Receive Date: 20080729
  Receipt Date: 20080722
  Transmission Date: 20090109
  Serious: Yes (Hospitalization)
  Sender: FDA-Public Use
  Company Number: US-ELI_LILLY_AND_COMPANY-US200807004630

PATIENT
  Weight: 2.721 kg

DRUGS (7)
  1. BYETTA [Suspect]
     Dosage: 5 UG, 2/D
     Route: 058
     Dates: start: 20060201, end: 20060101
  2. BYETTA [Suspect]
     Dosage: 10 UG, 2/D
     Route: 058
     Dates: start: 20060101, end: 20060101
  3. HUMALOG [Concomitant]
     Dates: start: 20060101
  4. HUMULIN N [Concomitant]
     Dates: start: 20060101
  5. AMBIEN [Concomitant]
     Dosage: UNK, AS NEEDED
  6. PROCARDIA [Concomitant]
     Route: 064
  7. GLUCOPHAGE [Concomitant]
     Route: 064

REACTIONS (2)
  - DRUG EXPOSURE DURING PREGNANCY [None]
  - PREMATURE BABY [None]
